FAERS Safety Report 7236513-7 (Version None)
Quarter: 2011Q1

REPORT INFORMATION
  Report Type: 
  Country: None (occurrence: None)
  Receive Date: 20110120
  Receipt Date: 20110119
  Transmission Date: 20110831
  Serious: No
  Sender: FDA-Public Use
  Company Number: US-TEVA-263882USA

PATIENT
  Age: 4 Year
  Sex: Female

DRUGS (2)
  1. ALBUTEROL SULFATE AUTOHALER [Suspect]
     Indication: COUGH
     Route: 055
     Dates: start: 20110107
  2. AEROCHAMBER [Suspect]
     Indication: COUGH
     Dates: start: 20110107

REACTIONS (1)
  - SKIN CHAPPED [None]
